FAERS Safety Report 15388064 (Version 1)
Quarter: 2018Q3

REPORT INFORMATION
  Report Type: Spontaneous
  Country: US (occurrence: US)
  Receive Date: 20180915
  Receipt Date: 20180915
  Transmission Date: 20181010
  Serious: Yes (Other)
  Sender: FDA-Public Use
  Company Number: US-ABBVIE-18K-163-2481721-00

PATIENT

DRUGS (3)
  1. HUMIRA [Suspect]
     Active Substance: ADALIMUMAB
     Indication: COLITIS ULCERATIVE
     Route: 058
  2. ENTYVIO [Suspect]
     Active Substance: VEDOLIZUMAB
     Indication: COLITIS ULCERATIVE
     Route: 065
  3. PREDNISONE. [Concomitant]
     Active Substance: PREDNISONE
     Indication: COLITIS ULCERATIVE
     Dosage: TAPERING
     Route: 065

REACTIONS (15)
  - Gastrointestinal pain [Unknown]
  - Herpes zoster [Unknown]
  - Systemic lupus erythematosus [Unknown]
  - Therapeutic response shortened [Unknown]
  - Back pain [Unknown]
  - Panic attack [Unknown]
  - Musculoskeletal pain [Unknown]
  - Painful respiration [Unknown]
  - Facial pain [Unknown]
  - Pain [Unknown]
  - Rash [Unknown]
  - Headache [Unknown]
  - Arthralgia [Unknown]
  - Costochondritis [Unknown]
  - Pain in extremity [Unknown]
